FAERS Safety Report 17740409 (Version 1)
Quarter: 2020Q2

REPORT INFORMATION
  Report Type: Spontaneous
  Country: US (occurrence: US)
  Receive Date: 20200501
  Receipt Date: 20200501
  Transmission Date: 20200714
  Serious: No
  Sender: FDA-Public Use
  Company Number: None

PATIENT
  Sex: Female

DRUGS (14)
  1. OCALIVA [Suspect]
     Active Substance: OBETICHOLIC ACID
     Indication: PRIMARY BILIARY CHOLANGITIS
     Dosage: ?          OTHER FREQUENCY:QD ON M+F;?
     Route: 048
     Dates: start: 20200409
  2. XIIDRA [Concomitant]
     Active Substance: LIFITEGRAST
  3. AZITHROMYCIN ANHYDROUS. [Concomitant]
     Active Substance: AZITHROMYCIN ANHYDROUS
  4. ESTRADIOL. [Concomitant]
     Active Substance: ESTRADIOL
  5. HYDROXYZ HCL [Concomitant]
     Active Substance: HYDROXYZINE HYDROCHLORIDE
  6. NORTRIPTYLIN [Concomitant]
     Active Substance: NORTRIPTYLINE
  7. VITAMIN D [Concomitant]
     Active Substance: VITAMIN D NOS
  8. URSODIOL. [Concomitant]
     Active Substance: URSODIOL
  9. ZOLIPDEM [Concomitant]
     Active Substance: ZOLPIDEM TARTRATE
  10. CONVARYX HS [Concomitant]
  11. SPIRONOLACT [Concomitant]
     Active Substance: SPIRONOLACTONE
  12. BUSPIRONE [Concomitant]
     Active Substance: BUSPIRONE HYDROCHLORIDE
  13. VALACYCLOVIR [Concomitant]
     Active Substance: VALACYCLOVIR HYDROCHLORIDE
  14. DOK [Concomitant]
     Active Substance: DOCUSATE SODIUM

REACTIONS (1)
  - Pruritus [None]
